FAERS Safety Report 11219759 (Version 1)
Quarter: 2015Q2

REPORT INFORMATION
  Report Type: Spontaneous
  Country: US (occurrence: US)
  Receive Date: 20150625
  Receipt Date: 20150625
  Transmission Date: 20150821
  Serious: Yes (Other)
  Sender: FDA-Public Use
  Company Number: US-SA-2015SA090632

PATIENT
  Age: 55 Year
  Sex: Female

DRUGS (3)
  1. LOVENOX [Suspect]
     Active Substance: ENOXAPARIN SODIUM
     Indication: INTERNATIONAL NORMALISED RATIO ABNORMAL
     Dosage: 8 YEARS ON AND OFF,
     Route: 065
     Dates: start: 2007
  2. LOVENOX [Suspect]
     Active Substance: ENOXAPARIN SODIUM
     Indication: CONNECTIVE TISSUE DISORDER
     Dosage: 8 YEARS ON AND OFF,
     Route: 065
     Dates: start: 2007
  3. COUMADIN [Concomitant]
     Active Substance: WARFARIN SODIUM

REACTIONS (4)
  - Visual impairment [Unknown]
  - Dyspepsia [Unknown]
  - Blood disorder [Unknown]
  - Pneumothorax [Unknown]
